FAERS Safety Report 10161471 (Version 1)
Quarter: 2014Q2

REPORT INFORMATION
  Report Type: Spontaneous
  Country: US (occurrence: US)
  Receive Date: 20140509
  Receipt Date: 20140509
  Transmission Date: 20141212
  Serious: No
  Sender: FDA-Public Use
  Company Number: US-TEVA-417608USA

PATIENT
  Sex: 0

DRUGS (1)
  1. CLARAVIS [Suspect]
     Indication: PITYRIASIS ROSEA
     Dosage: 1.4286 MILLIGRAM DAILY;
     Dates: start: 200710

REACTIONS (1)
  - Drug ineffective [Unknown]
